FAERS Safety Report 7213571-7 (Version None)
Quarter: 2011Q1

REPORT INFORMATION
  Report Type: 
  Country: None (occurrence: None)
  Receive Date: 20110106
  Receipt Date: 20110103
  Transmission Date: 20110831
  Serious: Yes (Hospitalization, Other)
  Sender: FDA-Public Use
  Company Number: BR-ABBOTT-10P-020-0678683-00

PATIENT
  Sex: Female
  Weight: 46 kg

DRUGS (7)
  1. METOPROLOL SUCCINATE [Concomitant]
     Indication: HYPERTENSION
     Route: 048
  2. TOMELOR (?) [Concomitant]
     Indication: ARTHRALGIA
     Route: 048
  3. HUMIRA [Suspect]
     Indication: RHEUMATOID ARTHRITIS
     Route: 058
     Dates: start: 20100901
  4. LEFLUNOMIDE [Concomitant]
     Indication: RHEUMATOID ARTHRITIS
     Route: 048
  5. DEFLAZACORT [Concomitant]
     Indication: ARTHRALGIA
     Route: 048
  6. TOMELOR (?) [Concomitant]
     Indication: SEDATIVE THERAPY
  7. SULFASALAZINE [Concomitant]
     Indication: CROHN'S DISEASE
     Route: 048

REACTIONS (9)
  - ANAEMIA [None]
  - BEDRIDDEN [None]
  - PNEUMONIA [None]
  - NOSOCOMIAL INFECTION [None]
  - COUGH [None]
  - PARALYSIS [None]
  - CEREBROVASCULAR ACCIDENT [None]
  - FEELING ABNORMAL [None]
  - LUNG DISORDER [None]
